FAERS Safety Report 7460588-3 (Version None)
Quarter: 2011Q2

REPORT INFORMATION
  Report Type: 
  Country: None (occurrence: None)
  Receive Date: 20110505
  Receipt Date: 20110502
  Transmission Date: 20111010
  Serious: Yes (Death, Disabling, Other)
  Sender: FDA-Public Use
  Company Number: US-PFIZER INC-2011032283

PATIENT
  Sex: Male

DRUGS (9)
  1. FEXOFENADINE [Concomitant]
     Indication: HYPERSENSITIVITY
     Dosage: UNK
     Dates: start: 20070101, end: 20090101
  2. OXYCODONE HCL AND ACETAMINOPHEN [Concomitant]
     Indication: BACK PAIN
     Dosage: UNK
     Dates: start: 20070101, end: 20090101
  3. LEXAPRO [Concomitant]
     Indication: ANXIETY
  4. LEXAPRO [Concomitant]
     Indication: DEPRESSION
     Dosage: UNK
     Dates: start: 20060101, end: 20090101
  5. PROAIR HFA [Concomitant]
     Indication: ASTHMA
     Dosage: UNK
     Dates: start: 20060101, end: 20090101
  6. CHANTIX [Suspect]
     Indication: SMOKING CESSATION THERAPY
     Dosage: 1 MG, UNK
     Dates: start: 20071231, end: 20091127
  7. ADVAIR DISKUS 100/50 [Concomitant]
     Indication: ASTHMA
     Dosage: UNK
     Dates: start: 20060101, end: 20090101
  8. FLUTICASONE [Concomitant]
     Indication: HYPERSENSITIVITY
     Dosage: UNK
     Dates: start: 20070101, end: 20090101
  9. CLONAZEPAM [Concomitant]
     Indication: ANXIETY
     Dosage: UNK
     Dates: start: 20060101, end: 20090101

REACTIONS (8)
  - MOOD SWINGS [None]
  - NIGHTMARE [None]
  - ANXIETY [None]
  - AGGRESSION [None]
  - DEPRESSION [None]
  - OBSESSIVE THOUGHTS [None]
  - PANIC ATTACK [None]
  - COMPLETED SUICIDE [None]
